FAERS Safety Report 9490390 (Version 2)
Quarter: 2013Q4

REPORT INFORMATION
  Report Type: Spontaneous
  Country: US (occurrence: US)
  Receive Date: 20130830
  Receipt Date: 20131018
  Transmission Date: 20140711
  Serious: Yes (Hospitalization)
  Sender: FDA-Public Use
  Company Number: US-ASTRAZENECA-2013SE64926

PATIENT
  Age: 70 Year
  Sex: Female
  Weight: 72.6 kg

DRUGS (4)
  1. LISINOPRIL [Suspect]
     Indication: HYPERTENSION
     Route: 048
     Dates: start: 2013
  2. PROPRANOLOL [Suspect]
     Indication: HYPERTENSION
     Route: 065
     Dates: start: 2013
  3. LYRICA [Suspect]
     Indication: NEURALGIA
     Route: 048
     Dates: start: 2012
  4. UNSPECIFIED MEDICATIONS [Concomitant]

REACTIONS (6)
  - Myocardial infarction [Unknown]
  - Blood pressure increased [Unknown]
  - Blood glucose increased [Unknown]
  - Sedation [None]
  - Intentional drug misuse [None]
  - Drug ineffective [Unknown]
